FAERS Safety Report 21650512 (Version 1)
Quarter: 2022Q4

REPORT INFORMATION
  Report Type: Spontaneous
  Country: US (occurrence: None)
  Receive Date: 20221123
  Receipt Date: 20221123
  Transmission Date: 20230113
  Serious: No
  Sender: FDA-Public Use
  Company Number: None

PATIENT
  Age: 80 Year
  Sex: Female
  Weight: 67.09 kg

DRUGS (7)
  1. XGEVA [Suspect]
     Active Substance: DENOSUMAB
     Indication: Breast cancer female
     Dosage: FREQUENCY : MONTHLY;?
     Route: 058
  2. FULVESTRANT [Suspect]
     Active Substance: FULVESTRANT
     Indication: Breast cancer female
     Dosage: FREQUENCY : AS DIRECTED;?
     Route: 041
  3. ATORVASTATIN CALCIUM [Concomitant]
     Active Substance: ATORVASTATIN CALCIUM
  4. GAS-X [Concomitant]
     Active Substance: DIMETHICONE
  5. HYDROCHLOROTHIAZIDE [Concomitant]
     Active Substance: HYDROCHLOROTHIAZIDE
  6. Multivitamin Adults [Concomitant]
  7. VITAMIN D3 [Concomitant]
     Active Substance: CHOLECALCIFEROL

REACTIONS (1)
  - Hospice care [None]
